FAERS Safety Report 13218748 (Version 1)
Quarter: 2017Q1

REPORT INFORMATION
  Report Type: Report from Study
  Country: US (occurrence: US)
  Receive Date: 20170210
  Receipt Date: 20170210
  Transmission Date: 20170428
  Serious: Yes (Other)
  Sender: FDA-Public Use
  Company Number: US-UCBSA-2017004949

PATIENT

DRUGS (1)
  1. LEVETIRACETAM. [Suspect]
     Active Substance: LEVETIRACETAM
     Indication: SEIZURE
     Dosage: UNK

REACTIONS (6)
  - Feeling abnormal [Unknown]
  - Hallucination [Unknown]
  - Feeling drunk [Unknown]
  - Diabetes insipidus [Unknown]
  - Pituitary cyst [Unknown]
  - Euphoric mood [Unknown]
